FAERS Safety Report 17433753 (Version 1)
Quarter: 2020Q1

REPORT INFORMATION
  Report Type: Report from Study
  Country: None (occurrence: CL)
  Receive Date: 20200219
  Receipt Date: 20200219
  Transmission Date: 20200409
  Serious: Yes (Other)
  Sender: FDA-Public Use
  Company Number: CL-ABBVIE-19K-034-2902168-00

PATIENT
  Age: 19 Year
  Sex: Female

DRUGS (2)
  1. HUMIRA [Suspect]
     Active Substance: ADALIMUMAB
     Route: 058
  2. HUMIRA [Suspect]
     Active Substance: ADALIMUMAB
     Indication: JUVENILE IDIOPATHIC ARTHRITIS
     Route: 058
     Dates: start: 20141009

REACTIONS (6)
  - Blood blister [Not Recovered/Not Resolved]
  - Viral tonsillitis [Recovered/Resolved]
  - Discharge [Not Recovered/Not Resolved]
  - Tongue blistering [Not Recovered/Not Resolved]
  - Wound [Not Recovered/Not Resolved]
  - Viral tonsillitis [Recovered/Resolved]

NARRATIVE: CASE EVENT DATE: 201907
